FAERS Safety Report 6399143-5 (Version None)
Quarter: 2009Q4

REPORT INFORMATION
  Report Type: 
  Country: None (occurrence: None)
  Receive Date: 20091008
  Receipt Date: 20090924
  Transmission Date: 20100525
  Serious: Yes (Hospitalization)
  Sender: FDA-Public Use
  Company Number: 900228435-AKO-4973AE

PATIENT
  Age: 2 Day

DRUGS (2)
  1. GENTAK [Suspect]
     Dosage: OPHTHALMIC
     Route: 047
     Dates: start: 20090919, end: 20090924
  2. GENTAK [Suspect]

REACTIONS (5)
  - APPLICATION SITE ERYTHEMA [None]
  - APPLICATION SITE INFLAMMATION [None]
  - APPLICATION SITE SWELLING [None]
  - EYELID MARGIN CRUSTING [None]
  - REACTION TO PRESERVATIVES [None]
